FAERS Safety Report 17201785 (Version 1)
Quarter: 2019Q4

REPORT INFORMATION
  Report Type: Report from Study
  Country: AR (occurrence: AR)
  Receive Date: 20191226
  Receipt Date: 20191226
  Transmission Date: 20200122
  Serious: Yes (Other)
  Sender: FDA-Public Use
  Company Number: AR-BAYER-2019-214975

PATIENT
  Age: 85 Year
  Sex: Male

DRUGS (2)
  1. IRON [Concomitant]
     Active Substance: IRON
  2. XOFIGO [Suspect]
     Active Substance: RADIUM RA-223 DICHLORIDE
     Indication: PROSTATE CANCER
     Dosage: UNK
     Dates: start: 20191101

REACTIONS (2)
  - Platelet count decreased [Not Recovered/Not Resolved]
  - Haematocrit decreased [Not Recovered/Not Resolved]

NARRATIVE: CASE EVENT DATE: 20191113
